FAERS Safety Report 5569311-0 (Version None)
Quarter: 2007Q4

REPORT INFORMATION
  Report Type: 
  Country: None (occurrence: None)
  Receive Date: 20071220
  Receipt Date: 20071018
  Transmission Date: 20080405
  Serious: No
  Sender: FDA-Public Use
  Company Number: A0688510A

PATIENT
  Age: 84 Year
  Sex: Male

DRUGS (8)
  1. AVODART [Suspect]
     Dosage: .5MG PER DAY
     Route: 048
     Dates: start: 20070401
  2. WARFARIN SODIUM [Concomitant]
  3. POTASSIUM CHLORIDE [Concomitant]
  4. LIPITOR [Concomitant]
  5. ASPIRIN [Concomitant]
  6. KLOR-CON [Concomitant]
  7. ALTACE [Concomitant]
  8. ISOSORBIDE DINITRATE [Concomitant]

REACTIONS (3)
  - BREAST MASS [None]
  - BREAST SWELLING [None]
  - BREAST TENDERNESS [None]
